FAERS Safety Report 14377952 (Version 1)
Quarter: 2018Q1

REPORT INFORMATION
  Report Type: Report from Study
  Country: US (occurrence: US)
  Receive Date: 20180111
  Receipt Date: 20180111
  Transmission Date: 20180509
  Serious: Yes (Hospitalization, Other)
  Sender: FDA-Public Use
  Company Number: US-BAUSCH-BL-2017-036553

PATIENT
  Sex: Female
  Weight: 47.67 kg

DRUGS (1)
  1. ANUSOL HC SUPPOSITORY [Suspect]
     Active Substance: HYDROCORTISONE ACETATE
     Indication: HAEMORRHOIDS
     Dosage: ONCE OR TWICE DAILY
     Route: 054
     Dates: start: 2015

REACTIONS (7)
  - Feeding disorder [Recovering/Resolving]
  - Haemorrhoids [Recovering/Resolving]
  - Immunodeficiency [Unknown]
  - Weight decreased [Recovering/Resolving]
  - Electrolyte imbalance [Recovering/Resolving]
  - Malaise [Recovering/Resolving]
  - Headache [Recovering/Resolving]

NARRATIVE: CASE EVENT DATE: 2016
